FAERS Safety Report 20344940 (Version 1)
Quarter: 2022Q1

REPORT INFORMATION
  Report Type: Spontaneous
  Country: CA (occurrence: CA)
  Receive Date: 20220118
  Receipt Date: 20220118
  Transmission Date: 20220423
  Serious: Yes (Hospitalization)
  Sender: FDA-Public Use
  Company Number: None

PATIENT
  Age: 64 Year
  Sex: Female

DRUGS (1)
  1. METHOTREXATE [Suspect]
     Active Substance: METHOTREXATE
     Indication: Arthritis
     Route: 065

REACTIONS (7)
  - Cold sweat [Unknown]
  - Headache [Unknown]
  - Mobility decreased [Unknown]
  - Parosmia [Unknown]
  - Speech disorder [Unknown]
  - Visual impairment [Unknown]
  - Vomiting [Unknown]
